FAERS Safety Report 4302920-5 (Version None)
Quarter: 2004Q1

REPORT INFORMATION
  Report Type: 
  Country: None (occurrence: None)
  Receive Date: 20040223
  Receipt Date: 20040223
  Transmission Date: 20041129
  Serious: Yes (Hospitalization)
  Sender: FDA-Public Use
  Company Number: None

PATIENT
  Weight: 86.3 kg

DRUGS (12)
  1. DOCETAXEL [Suspect]
     Indication: PROSTATE CANCER
     Dosage: 80 MG QWEEK IV
     Route: 042
     Dates: start: 20031210, end: 20031217
  2. ESTRAMUSTINE [Suspect]
     Indication: PROSTATE CANCER
     Dosage: 280 MG Q DAY FOR 5 ORAL
     Route: 048
     Dates: start: 20031217, end: 20031217
  3. INSULIN [Concomitant]
  4. ALLOPURINOL [Concomitant]
  5. COUMADIN [Concomitant]
  6. TENORMIN [Concomitant]
  7. AVALIDE [Concomitant]
  8. PLAVIX [Concomitant]
  9. LIPITOR [Concomitant]
  10. LEXAPRO [Concomitant]
  11. ZOLADEX [Concomitant]
  12. ZOMETA [Concomitant]

REACTIONS (3)
  - HYPOGLYCAEMIA [None]
  - TREATMENT NONCOMPLIANCE [None]
  - URINARY TRACT INFECTION [None]
